FAERS Safety Report 8379401-5 (Version None)
Quarter: 2012Q1

REPORT INFORMATION
  Report Type: 
  Country: None (occurrence: None)
  Receive Date: 20120323
  Receipt Date: 20110506
  Transmission Date: 20120608
  Serious: Yes (Hospitalization)
  Sender: FDA-Public Use
  Company Number: 163-21880-11050959

PATIENT
  Age: 43 Year
  Sex: Female
  Weight: 50.3 kg

DRUGS (2)
  1. DEXAMETHASONE [Concomitant]
  2. REVLIMID [Suspect]
     Indication: MULTIPLE MYELOMA
     Dosage: 25 MG, DAY 1-21, PO
     Route: 048
     Dates: start: 20110426

REACTIONS (1)
  - RENAL FAILURE ACUTE [None]
